FAERS Safety Report 10097107 (Version 2)
Quarter: 2014Q2

REPORT INFORMATION
  Report Type: Spontaneous
  Country: US (occurrence: US)
  Receive Date: 20140422
  Receipt Date: 20140422
  Transmission Date: 20141212
  Serious: No
  Sender: FDA-Public Use
  Company Number: US-GILEAD-2012-0064322

PATIENT
  Sex: Male

DRUGS (5)
  1. LETAIRIS [Suspect]
     Indication: PULMONARY HYPERTENSION
     Dosage: 10 MG, QD
     Route: 048
     Dates: start: 20121002
  2. LETAIRIS [Suspect]
     Indication: EMBOLISM
  3. TYVASO [Concomitant]
  4. ADCIRCA [Concomitant]
  5. LASIX                              /00032601/ [Concomitant]

REACTIONS (1)
  - Fluid retention [Unknown]
